FAERS Safety Report 6680871-9 (Version None)
Quarter: 2010Q2

REPORT INFORMATION
  Report Type: 
  Country: None (occurrence: None)
  Receive Date: 20100414
  Receipt Date: 20100405
  Transmission Date: 20101027
  Serious: Yes (Other)
  Sender: FDA-Public Use
  Company Number: US-JNJFOC-20100401903

PATIENT
  Sex: Female
  Weight: 92.08 kg

DRUGS (11)
  1. DOXIL [Suspect]
     Indication: OVARIAN CANCER
     Route: 042
  2. AVASTIN [Concomitant]
     Indication: OVARIAN CANCER
     Route: 042
  3. GABAPENTIN [Concomitant]
     Indication: PAIN
     Route: 065
  4. SIMVASTATIN [Concomitant]
     Indication: BLOOD CHOLESTEROL ABNORMAL
     Route: 065
  5. LISINOPRIL [Concomitant]
     Indication: HYPERTENSION
     Route: 065
  6. VICODIN [Concomitant]
     Indication: PAIN
     Route: 065
  7. MEGA [Concomitant]
     Indication: STOMATITIS
     Route: 065
  8. LOVAZA [Concomitant]
     Indication: SUPPLEMENTATION THERAPY
     Route: 048
  9. COLACE [Concomitant]
     Route: 065
  10. ATIVAN [Concomitant]
     Route: 065
  11. ZOVIRAX [Concomitant]
     Route: 065

REACTIONS (1)
  - BONE DENSITY DECREASED [None]
